FAERS Safety Report 7759586-1 (Version None)
Quarter: 2011Q3

REPORT INFORMATION
  Report Type: 
  Country: None (occurrence: None)
  Receive Date: 20110919
  Receipt Date: 20110908
  Transmission Date: 20111222
  Serious: Yes (Hospitalization, Other)
  Sender: FDA-Public Use
  Company Number: US-JNJFOC-20110904240

PATIENT
  Age: 45 Year
  Sex: Male

DRUGS (3)
  1. RISPERDAL [Suspect]
     Indication: SCHIZOPHRENIA
     Dosage: 1 MG TWICE A DAY
     Route: 048
     Dates: start: 20110825, end: 20110826
  2. INVEGA SUSTENNA [Suspect]
     Indication: SCHIZOPHRENIA
     Route: 030
     Dates: start: 20110831, end: 20110831
  3. RISPERDAL [Suspect]
     Dosage: 2 MG TWICE A DAY
     Route: 048
     Dates: start: 20110827, end: 20110830

REACTIONS (1)
  - NEUROLEPTIC MALIGNANT SYNDROME [None]
